FAERS Safety Report 23926584 (Version 1)
Quarter: 2024Q2

REPORT INFORMATION
  Report Type: Spontaneous
  Country: US (occurrence: US)
  Receive Date: 20240531
  Receipt Date: 20240531
  Transmission Date: 20240717
  Serious: No
  Sender: FDA-Public Use
  Company Number: US-IPSEN Group, Research and Development-2024-06260

PATIENT
  Age: 63 Year
  Sex: Male
  Weight: 66 kg

DRUGS (19)
  1. DYSPORT [Suspect]
     Active Substance: ABOBOTULINUMTOXINA
     Indication: Dystonia
     Dosage: L FDB 125 X 2, FHB 125 X 2, FHL 125 X 2, FDL ?125 X 2, R FDB 125 X 2, FHB 125 X 2, FHL 125 X2, FDL 1
     Route: 030
     Dates: start: 20240112, end: 20240112
  2. DYSPORT [Suspect]
     Active Substance: ABOBOTULINUMTOXINA
     Indication: Off label use
     Route: 030
     Dates: start: 20240504, end: 20240504
  3. DYSPORT [Suspect]
     Active Substance: ABOBOTULINUMTOXINA
     Route: 065
     Dates: start: 20240404, end: 20240404
  4. NUPLAZID [Concomitant]
     Active Substance: PIMAVANSERIN TARTRATE
     Dosage: 34 MG CAP
     Dates: start: 20240110
  5. NUPLAZID [Concomitant]
     Active Substance: PIMAVANSERIN TARTRATE
     Dosage: 10 MG TAB
     Dates: start: 20221125
  6. SYNTHROID [Concomitant]
     Active Substance: LEVOTHYROXINE SODIUM
  7. MELATONIN [Concomitant]
     Active Substance: MELATONIN
     Dosage: CAPSULE
  8. SINEMET [Concomitant]
     Active Substance: CARBIDOPA\LEVODOPA
     Dosage: CARBIDOPA-LEVODOPA (25-100 MG) PER TABLET CAPSULE TAKE 1 CAPSULE CUSTOM SCHEDULE BY MOUTH 1 TABLET 4
     Dates: start: 20230711, end: 20240507
  9. KLONOPIN [Concomitant]
     Active Substance: CLONAZEPAM
     Dosage: 1.5 MG NIGHTLY,
     Dates: start: 20221022
  10. CYANOCOBALAMIN [Concomitant]
     Active Substance: CYANOCOBALAMIN
     Dosage: 1 TABLET
  11. LEXAPRO [Concomitant]
     Active Substance: ESCITALOPRAM OXALATE
     Dates: start: 20220411
  12. PYRIDOXINE [Concomitant]
     Active Substance: PYRIDOXINE
  13. RASAGILINE [Concomitant]
     Active Substance: RASAGILINE\RASAGILINE MESYLATE
     Dosage: 1.5 MG CAPSULE BY NIGHT
  14. ROSUVASTATIN [Concomitant]
     Active Substance: ROSUVASTATIN
     Dates: start: 20221029
  15. VESICARE [Concomitant]
     Active Substance: SOLIFENACIN SUCCINATE
     Dates: start: 20221104
  16. TRIAMCINOLONE [Concomitant]
     Active Substance: TRIAMCINOLONE
     Dosage: 0.1 % CREAM
  17. CALCIUM CARBONATE- VITAMIN D [Concomitant]
  18. RYTARY [Concomitant]
     Active Substance: CARBIDOPA\LEVODOPA
     Dosage: CARBIDOPA-LEVODOPA (RYTARY) 48.75-195 MG CR ?CAPSULE TAKE 1 CAPSULE CUSTOM SCHEDULE BY MOUTH 1 TABLE
  19. NEUPRO [Concomitant]
     Active Substance: ROTIGOTINE
     Dosage: 4 MG/HR PATCH

REACTIONS (4)
  - Muscular weakness [Unknown]
  - Off label use [Unknown]
  - Prescribed overdose [Unknown]
  - Off label use [Unknown]

NARRATIVE: CASE EVENT DATE: 20240101
